FAERS Safety Report 9300412 (Version 1)
Quarter: 2013Q2

REPORT INFORMATION
  Report Type: Spontaneous
  Country: US (occurrence: US)
  Receive Date: 20130521
  Receipt Date: 20130521
  Transmission Date: 20140414
  Serious: No
  Sender: FDA-Public Use
  Company Number: US-BAYER-2013-062814

PATIENT
  Sex: Male

DRUGS (1)
  1. ALEVE TABLET [Suspect]
     Indication: HEADACHE
     Dosage: 2 DF, QD
     Route: 048
     Dates: start: 20130516

REACTIONS (1)
  - Drug ineffective [None]
